FAERS Safety Report 23748868 (Version 1)
Quarter: 2024Q2

REPORT INFORMATION
  Report Type: Spontaneous
  Country: CN (occurrence: CN)
  Receive Date: 20240416
  Receipt Date: 20240416
  Transmission Date: 20240716
  Serious: Yes (Other)
  Sender: FDA-Public Use
  Company Number: CN-JNJFOC-20240419051

PATIENT

DRUGS (3)
  1. IMBRUVICA [Suspect]
     Active Substance: IBRUTINIB
     Indication: B-cell lymphoma
     Route: 048
  2. ACALABRUTINIB [Suspect]
     Active Substance: ACALABRUTINIB
     Indication: B-cell lymphoma
     Route: 050
  3. ZANUBRUTINIB [Suspect]
     Active Substance: ZANUBRUTINIB
     Indication: B-cell lymphoma
     Route: 065

REACTIONS (24)
  - Haematochezia [Unknown]
  - Spinal cord haemorrhage [Unknown]
  - Pituitary haemorrhage [Unknown]
  - Blood blister [Unknown]
  - Subarachnoid haemorrhage [Unknown]
  - Meningorrhagia [Unknown]
  - Haemorrhagic diathesis [Unknown]
  - Gastrointestinal haemorrhage [Unknown]
  - Eye haemorrhage [Unknown]
  - Increased tendency to bruise [Unknown]
  - Cerebral haemorrhage [Unknown]
  - Subdural haematoma [Unknown]
  - Haemoptysis [Unknown]
  - Haemorrhage intracranial [Unknown]
  - Petechiae [Unknown]
  - Haematuria [Unknown]
  - Haemorrhagic stroke [Unknown]
  - Post procedural haemorrhage [Unknown]
  - Skin haemorrhage [Unknown]
  - Blood urine [Unknown]
  - Contusion [Unknown]
  - Epistaxis [Unknown]
  - Haemorrhage [Unknown]
  - Cerebral haematoma [Unknown]
